FAERS Safety Report 18273213 (Version 1)
Quarter: 2020Q3

REPORT INFORMATION
  Report Type: Spontaneous
  Country: US (occurrence: US)
  Receive Date: 20200916
  Receipt Date: 20200916
  Transmission Date: 20201103
  Serious: No
  Sender: FDA-Public Use
  Company Number: US-BIODELIVERY SCIENCES INTERNATIONAL-2020BDSI0488

PATIENT
  Age: 64 Year
  Sex: Female
  Weight: 68.1 kg

DRUGS (6)
  1. TIZANIDINE HYDROCHLORIDE. [Concomitant]
     Active Substance: TIZANIDINE HYDROCHLORIDE
     Indication: MUSCLE RELAXANT THERAPY
     Route: 048
  2. PARACETAMOL/OXYCODONE HYDROCHLORIDE [Concomitant]
     Active Substance: ACETAMINOPHEN\OXYCODONE HYDROCHLORIDE
     Indication: PAIN
     Dosage: UNKNOWN
     Route: 065
  3. BUPRENORPHINE. [Suspect]
     Active Substance: BUPRENORPHINE
     Dosage: 1 FILM EVERY 6 TO 7 HOURS (3 FILMS A DAY)
     Route: 002
     Dates: start: 201908
  4. BUPRENORPHINE. [Suspect]
     Active Substance: BUPRENORPHINE
     Dosage: 1 FILM EVERY 6 TO 7 HOURS (3 FILMS A DAY)
     Route: 002
     Dates: start: 2019, end: 2019
  5. BUPRENORPHINE. [Suspect]
     Active Substance: BUPRENORPHINE
     Dosage: 1 FILM EVERY 6 TO 7 HOURS (3 FILMS A DAY)
     Route: 002
     Dates: start: 201908
  6. BUPRENORPHINE. [Suspect]
     Active Substance: BUPRENORPHINE
     Indication: PAIN
     Dosage: 1 FILM EVERY 6 TO 7 HOURS (3 FILMS A DAY)
     Route: 002
     Dates: start: 201905, end: 2019

REACTIONS (5)
  - Therapeutic response decreased [Unknown]
  - Product solubility abnormal [Unknown]
  - Product physical issue [Unknown]
  - Off label use [Not Recovered/Not Resolved]
  - Drug ineffective [Unknown]

NARRATIVE: CASE EVENT DATE: 201905
